FAERS Safety Report 6147447-3 (Version None)
Quarter: 2009Q2

REPORT INFORMATION
  Report Type: 
  Country: None (occurrence: None)
  Receive Date: 20090408
  Receipt Date: 20090403
  Transmission Date: 20091009
  Serious: Yes (Hospitalization, Other)
  Sender: FDA-Public Use
  Company Number: GB-BRISTOL-MYERS SQUIBB COMPANY-14574743

PATIENT
  Sex: Female

DRUGS (3)
  1. SUSTIVA [Suspect]
     Dosage: TAKEN 800 MG FOR 1 MONTH, THEN 200 MG, THEN 400MG, INTERRUPTED FOR 1 WEEK
     Route: 048
  2. ATRIPLA [Suspect]
     Dosage: 1 DF = EFAVIRENZ 600MG + EMTRICITABINE 200MG + TENOFIR DISOPROXIL 245MG.
     Route: 048
  3. TRUVADA [Concomitant]
     Dosage: TENNOFIR DISOPROXIL 245MG + EMTRICITABINE 200MG.

REACTIONS (5)
  - CONVULSION [None]
  - DEPRESSION [None]
  - DIZZINESS [None]
  - DRUG LEVEL INCREASED [None]
  - NIGHTMARE [None]
